FAERS Safety Report 25680205 (Version 1)
Quarter: 2025Q3

REPORT INFORMATION
  Report Type: Report from Study
  Country: US (occurrence: US)
  Receive Date: 20250814
  Receipt Date: 20250814
  Transmission Date: 20251021
  Serious: No
  Sender: SUNOVION
  Company Number: US-SUMITOMO PHARMA SWITZERLAND GMBH-2024SPA004490

PATIENT
  Age: 70 Year
  Sex: Male

DRUGS (3)
  1. ORGOVYX [Suspect]
     Active Substance: RELUGOLIX
     Indication: Prostate cancer
     Dosage: 360 MG, SINGLE
     Route: 048
     Dates: start: 20240904, end: 20240904
  2. ORGOVYX [Suspect]
     Active Substance: RELUGOLIX
     Dosage: 120 MG, QD
     Route: 048
     Dates: start: 20240905
  3. IBRANCE [Suspect]
     Active Substance: PALBOCICLIB
     Indication: Prostate cancer

REACTIONS (19)
  - Frequent bowel movements [Unknown]
  - Body temperature fluctuation [Unknown]
  - Decreased appetite [Unknown]
  - Pollakiuria [Unknown]
  - Gout [Unknown]
  - Muscle spasms [Unknown]
  - Bradykinesia [Unknown]
  - Dizziness postural [Not Recovered/Not Resolved]
  - Feeling abnormal [Unknown]
  - Peripheral swelling [Unknown]
  - Gait disturbance [Unknown]
  - Bone disorder [Unknown]
  - Dizziness [Unknown]
  - Night sweats [Unknown]
  - Pain in extremity [Unknown]
  - Feeling hot [Unknown]
  - Insomnia [Unknown]
  - Hot flush [Unknown]
  - Extra dose administered [Unknown]
